FAERS Safety Report 5625522-7 (Version None)
Quarter: 2008Q1

REPORT INFORMATION
  Report Type: 
  Country: None (occurrence: None)
  Receive Date: 20080211
  Receipt Date: 20080211
  Transmission Date: 20080703
  Serious: No
  Sender: FDA-Public Use
  Company Number: None

PATIENT
  Age: 43 Year
  Sex: Male
  Weight: 67.6 kg

DRUGS (2)
  1. ABILIFY [Suspect]
     Indication: PSYCHOTIC DISORDER
     Dosage: 15MG  BEDTIME  PO
     Route: 048
     Dates: start: 20080205, end: 20080206
  2. ABILIFY [Suspect]
     Indication: PSYCHOTIC DISORDER
     Dosage: 15MG  BEDTIME  PO
     Route: 048
     Dates: start: 20080206, end: 20080206

REACTIONS (1)
  - HICCUPS [None]
